FAERS Safety Report 14608357 (Version 1)
Quarter: 2018Q1

REPORT INFORMATION
  Report Type: Spontaneous
  Country: US (occurrence: US)
  Receive Date: 20180307
  Receipt Date: 20180307
  Transmission Date: 20180509
  Serious: No
  Sender: FDA-Public Use
  Company Number: US-BEH-2018088484

PATIENT
  Age: 43 Year
  Sex: Female
  Weight: 90.25 kg

DRUGS (25)
  1. EPINEPHRINE. [Concomitant]
     Active Substance: EPINEPHRINE
  2. LOPERAMIDE [Concomitant]
     Active Substance: LOPERAMIDE
  3. BUPROPION. [Concomitant]
     Active Substance: BUPROPION
  4. ACETAMINOPHEN. [Concomitant]
     Active Substance: ACETAMINOPHEN
  5. VICKS DAYQUIL/NYQUIL [Concomitant]
  6. XANAX [Concomitant]
     Active Substance: ALPRAZOLAM
  7. CLOTRIMAZOLE 7 [Concomitant]
     Active Substance: CLOTRIMAZOLE
  8. CYMBALTA [Concomitant]
     Active Substance: DULOXETINE HYDROCHLORIDE
  9. FAMOTIDINE. [Concomitant]
     Active Substance: FAMOTIDINE
  10. CLOBETASOL [Concomitant]
     Active Substance: CLOBETASOL
  11. PRIVIGEN [Suspect]
     Active Substance: HUMAN IMMUNOGLOBULIN G
     Indication: DERMATOMYOSITIS
     Dosage: 80 G, AS DIRECTED
     Route: 042
     Dates: start: 20161230
  12. CELLCEPT [Concomitant]
     Active Substance: MYCOPHENOLATE MOFETIL\MYCOPHENOLATE MOFETIL HYDROCHLORIDE
  13. SINGULAIR [Concomitant]
     Active Substance: MONTELUKAST SODIUM
  14. BYSTOLIC [Concomitant]
     Active Substance: NEBIVOLOL HYDROCHLORIDE
  15. HEPARIN [Concomitant]
     Active Substance: HEPARIN SODIUM
  16. PREDNISONE. [Concomitant]
     Active Substance: PREDNISONE
  17. PRILOSEC [Concomitant]
     Active Substance: OMEPRAZOLE MAGNESIUM
  18. PERCOCET                           /00446701/ [Concomitant]
     Active Substance: ACETAMINOPHEN\OXYCODONE HYDROCHLORIDE\OXYCODONE TEREPHTHALATE
  19. DIPHENHYDRAMINE. [Concomitant]
     Active Substance: DIPHENHYDRAMINE
  20. H.P. ACTHAR [Concomitant]
     Active Substance: CORTICOTROPIN
  21. ZOFRAN [Concomitant]
     Active Substance: ONDANSETRON HYDROCHLORIDE
  22. ELIDEL [Concomitant]
     Active Substance: PIMECROLIMUS
  23. VITAMIN D2 [Concomitant]
     Active Substance: ERGOCALCIFEROL
  24. NORMAL SALINE [Concomitant]
     Active Substance: SODIUM CHLORIDE
  25. FOLIC ACID. [Concomitant]
     Active Substance: FOLIC ACID

REACTIONS (2)
  - Epistaxis [Recovering/Resolving]
  - Headache [Recovering/Resolving]

NARRATIVE: CASE EVENT DATE: 20180223
